FAERS Safety Report 24632557 (Version 1)
Quarter: 2024Q4

REPORT INFORMATION
  Report Type: Spontaneous
  Country: RO (occurrence: RO)
  Receive Date: 20241118
  Receipt Date: 20241118
  Transmission Date: 20250115
  Serious: Yes (Hospitalization, Other)
  Sender: ABBVIE
  Company Number: RO-ABBVIE-6001297

PATIENT
  Age: 60 Year
  Sex: Male

DRUGS (14)
  1. VENETOCLAX [Suspect]
     Active Substance: VENETOCLAX
     Indication: Chronic lymphocytic leukaemia
     Dosage: CYCLE 1, DAY 22-28: 20 MG DAILY
     Route: 048
     Dates: start: 2024, end: 2024
  2. VENETOCLAX [Suspect]
     Active Substance: VENETOCLAX
     Indication: Chronic lymphocytic leukaemia
     Dosage: CYCLE 2, DAY 1-7; 50 MG DAILY
     Route: 048
     Dates: start: 2024, end: 2024
  3. VENETOCLAX [Suspect]
     Active Substance: VENETOCLAX
     Indication: Chronic lymphocytic leukaemia
     Dosage: CYCLE 2, 8-14: 100 MG DAILY
     Route: 048
     Dates: start: 2024, end: 2024
  4. VENETOCLAX [Suspect]
     Active Substance: VENETOCLAX
     Indication: Chronic lymphocytic leukaemia
     Dosage: CYCLE 2, 15-21: 200 MG DAILY
     Route: 048
     Dates: start: 2024, end: 2024
  5. VENETOCLAX [Suspect]
     Active Substance: VENETOCLAX
     Indication: Chronic lymphocytic leukaemia
     Dosage: CYCLE 2, 22-28: 400 MG DAILY
     Route: 048
     Dates: start: 2024, end: 2024
  6. VENETOCLAX [Suspect]
     Active Substance: VENETOCLAX
     Indication: Chronic lymphocytic leukaemia
     Dosage: CYCLES 3-12: 400 MG DAILY
     Route: 048
     Dates: start: 2024, end: 2024
  7. VENETOCLAX [Suspect]
     Active Substance: VENETOCLAX
     Indication: Chronic lymphocytic leukaemia
     Dosage: OWN INITIATIVE
     Route: 048
     Dates: start: 2024, end: 2024
  8. VENETOCLAX [Suspect]
     Active Substance: VENETOCLAX
     Indication: Chronic lymphocytic leukaemia
     Dosage: END DATE IN 2024
     Route: 048
     Dates: start: 20240912
  9. VENETOCLAX [Suspect]
     Active Substance: VENETOCLAX
     Indication: Chronic lymphocytic leukaemia
     Dosage: END DATE IN 2024
     Route: 048
     Dates: start: 20241010
  10. FILGRASTIM [Concomitant]
     Active Substance: FILGRASTIM
     Indication: Product used for unknown indication
  11. OBINUTUZUMAB [Concomitant]
     Active Substance: OBINUTUZUMAB
     Indication: Chronic lymphocytic leukaemia
     Dosage: CYCLE 1, DAY 1: 100 MG,
     Route: 042
     Dates: start: 20240616, end: 20240616
  12. OBINUTUZUMAB [Concomitant]
     Active Substance: OBINUTUZUMAB
     Indication: Chronic lymphocytic leukaemia
     Dosage: DAY 2: 900 MG,
     Route: 042
     Dates: start: 20240617, end: 20240617
  13. OBINUTUZUMAB [Concomitant]
     Active Substance: OBINUTUZUMAB
     Indication: Chronic lymphocytic leukaemia
     Dosage: DAY 8%15: 1000 MG, CYCLES 2-6: 1000 MG
     Route: 042
     Dates: start: 20240624
  14. Diurex [Concomitant]
     Indication: Product used for unknown indication
     Dosage: 1 TABLET

REACTIONS (13)
  - Gastritis [Unknown]
  - Helicobacter gastritis [Recovering/Resolving]
  - Tumour lysis syndrome [Unknown]
  - Abdominal pain [Unknown]
  - Decreased appetite [Unknown]
  - Aortic dilatation [Unknown]
  - Hepatomegaly [Unknown]
  - Oedema peripheral [Unknown]
  - Unevaluable event [Unknown]
  - Neutropenia [Unknown]
  - Chest pain [Unknown]
  - Aortic dissection [Recovering/Resolving]
  - General physical health deterioration [Unknown]

NARRATIVE: CASE EVENT DATE: 20240101
